FAERS Safety Report 17259530 (Version 1)
Quarter: 2020Q1

REPORT INFORMATION
  Report Type: Spontaneous
  Country: US (occurrence: US)
  Receive Date: 20200110
  Receipt Date: 20200110
  Transmission Date: 20200409
  Serious: No
  Sender: FDA-Public Use
  Company Number: US-VIFOR (INTERNATIONAL) INC.-VIT-2019-17381

PATIENT
  Sex: Male

DRUGS (8)
  1. LANTHANUM [Concomitant]
     Active Substance: LANTHANUM
  2. OMEPRAZOLE. [Concomitant]
     Active Substance: OMEPRAZOLE
  3. GABAPENTIN. [Concomitant]
     Active Substance: GABAPENTIN
  4. HYDRALAZINE [Concomitant]
     Active Substance: HYDRALAZINE HYDROCHLORIDE
  5. CARVEDILOL. [Concomitant]
     Active Substance: CARVEDILOL
  6. MORPHINE [Concomitant]
     Active Substance: MORPHINE
  7. VELTASSA [Suspect]
     Active Substance: PATIROMER
     Indication: HYPERKALAEMIA
     Route: 048
     Dates: start: 20191127
  8. SEVELAMER [Concomitant]
     Active Substance: SEVELAMER

REACTIONS (2)
  - Product dose omission [Unknown]
  - Diarrhoea [Not Recovered/Not Resolved]

NARRATIVE: CASE EVENT DATE: 2019
